FAERS Safety Report 6794509-3 (Version None)
Quarter: 2010Q2

REPORT INFORMATION
  Report Type: 
  Country: None (occurrence: None)
  Receive Date: 20100625
  Receipt Date: 20100615
  Transmission Date: 20101027
  Serious: Yes (Other)
  Sender: FDA-Public Use
  Company Number: US-PFIZER INC-2010056892

PATIENT
  Sex: Female
  Weight: 90 kg

DRUGS (6)
  1. GEODON [Suspect]
     Indication: BIPOLAR DISORDER
     Dosage: 60 MG, 1X/DAY
     Route: 048
     Dates: end: 20100401
  2. GEODON [Suspect]
     Indication: INSOMNIA
  3. CYMBALTA [Concomitant]
     Indication: DEPRESSION
     Dosage: 2 MG, 1X/DAY
     Route: 048
  4. SEROQUEL [Concomitant]
     Indication: DEPRESSION
     Dosage: 900 MG, 1X/DAY
     Route: 048
  5. SEROQUEL [Concomitant]
     Indication: INSOMNIA
  6. KLONOPIN [Concomitant]
     Indication: ANXIETY
     Dosage: 60 MG, 1X/DAY
     Route: 048

REACTIONS (4)
  - CHEST PAIN [None]
  - INSOMNIA [None]
  - PANIC ATTACK [None]
  - TACHYPHRENIA [None]
